FAERS Safety Report 9123064 (Version 1)
Quarter: 2013Q1

REPORT INFORMATION
  Report Type: Spontaneous
  Country: MX (occurrence: MX)
  Receive Date: 20130115
  Receipt Date: 20130115
  Transmission Date: 20140127
  Serious: Yes (Other)
  Sender: FDA-Public Use
  Company Number: PHHY2013MX003560

PATIENT
  Age: 58 Year
  Sex: Female

DRUGS (1)
  1. EXFORGE HCT [Suspect]
     Indication: HYPERTENSION
     Dosage: 1 DF (320/10/25 MG) DAILY
     Route: 048

REACTIONS (1)
  - Limb injury [Not Recovered/Not Resolved]
